FAERS Safety Report 4994082-6 (Version None)
Quarter: 2006Q2

REPORT INFORMATION
  Report Type: 
  Country: None (occurrence: None)
  Receive Date: 20060503
  Receipt Date: 20060421
  Transmission Date: 20061013
  Serious: Yes (Other)
  Sender: FDA-Public Use
  Company Number: 2006US000790

PATIENT
  Age: 36 Year
  Sex: Male
  Weight: 93 kg

DRUGS (2)
  1. ADENOSCAN [Suspect]
     Indication: ANGINA PECTORIS
     Dosage: 120 RK/MIN, IV NOS
     Route: 042
     Dates: start: 20060310, end: 20060310
  2. ADENOSCAN [Suspect]
     Indication: SCAN MYOCARDIAL PERFUSION
     Dosage: 120 RK/MIN, IV NOS
     Route: 042
     Dates: start: 20060310, end: 20060310

REACTIONS (5)
  - ATRIOVENTRICULAR BLOCK [None]
  - BRADYCARDIA [None]
  - CARDIAC ARREST [None]
  - LOSS OF CONSCIOUSNESS [None]
  - SHOCK [None]
